FAERS Safety Report 5092924-X (Version None)
Quarter: 2006Q3

REPORT INFORMATION
  Report Type: 
  Country: None (occurrence: None)
  Receive Date: 20060726
  Receipt Date: 20010813
  Transmission Date: 20061208
  Serious: Yes (Death)
  Sender: FDA-Public Use
  Company Number: 2013954

PATIENT
  Age: 45 Year
  Sex: Male
  Weight: 81.6 kg

DRUGS (7)
  1. MORPHINE SULFATE [Suspect]
     Indication: DRUG USE FOR UNKNOWN INDICATION
  2. HYDROCODONE BITARTRATE (SIMILAR TO IND 59,175) (HYDROCODONE BITARTRATE [Suspect]
     Indication: DRUG USE FOR UNKNOWN INDICATION
  3. DIHYDROCODEINE (DIHYDROCODEINE) [Suspect]
     Indication: DRUG USE FOR UNKNOWN INDICATION
  4. OXAZEPAM [Suspect]
     Indication: DRUG USE FOR UNKNOWN INDICATION
  5. FLURAZEPAM HCL [Suspect]
     Indication: DRUG USE FOR UNKNOWN INDICATION
  6. DIAZEPAM [Suspect]
     Indication: DRUG USE FOR UNKNOWN INDICATION
  7. CHLORDIAZEPOXIDE (CHLORIAZEPOXIDE) [Suspect]
     Indication: DRUG USE FOR UNKNOWN INDICATION

REACTIONS (1)
  - OVERDOSE [None]
